FAERS Safety Report 18416783 (Version 1)
Quarter: 2020Q4

REPORT INFORMATION
  Report Type: Report from Study
  Country: AR (occurrence: US)
  Receive Date: 20201022
  Receipt Date: 20201022
  Transmission Date: 20210114
  Serious: Yes (Other)
  Sender: FDA-Public Use
  Company Number: AR-BRISTOL-MYERS SQUIBB COMPANY-BMS-2020-087910

PATIENT
  Age: 27 Year
  Sex: Female

DRUGS (10)
  1. MEPREDNISONE [Concomitant]
     Active Substance: MEPREDNISONE
     Indication: RENAL TRANSPLANT
     Dosage: 20 MILLIGRAM, QD
     Route: 048
  2. MYFORTIC [Concomitant]
     Active Substance: MYCOPHENOLATE SODIUM
     Indication: RENAL TRANSPLANT
     Dosage: 720 MILLIGRAM, BID
     Route: 065
  3. METHYLPREDNISOLONE. [Concomitant]
     Active Substance: METHYLPREDNISOLONE
     Indication: RENAL TRANSPLANT
     Dosage: 500 MILLIGRAM
     Route: 065
  4. MEPREDNISONE [Concomitant]
     Active Substance: MEPREDNISONE
     Dosage: 10 MILLIGRAM, QD
     Route: 048
  5. BELATACEPT [Suspect]
     Active Substance: BELATACEPT
     Indication: RENAL TRANSPLANT
     Dosage: 10 MILLIGRAM/KILOGRAM
     Route: 042
  6. BELATACEPT [Suspect]
     Active Substance: BELATACEPT
     Dosage: 5 MILLIGRAM/KILOGRAM
     Route: 042
  7. MEPREDNISONE [Concomitant]
     Active Substance: MEPREDNISONE
     Dosage: 4 MILLIGRAM, QD
     Route: 048
  8. MEPREDNISONE [Concomitant]
     Active Substance: MEPREDNISONE
     Dosage: 15 MILLIGRAM, QD
     Route: 048
  9. METHYLPREDNISOLONE. [Concomitant]
     Active Substance: METHYLPREDNISOLONE
     Dosage: 250 MILLIGRAM
     Route: 065
  10. METHYLPREDNISOLONE. [Concomitant]
     Active Substance: METHYLPREDNISOLONE
     Dosage: 125 MILLIGRAM
     Route: 065

REACTIONS (1)
  - American trypanosomiasis [Unknown]
